FAERS Safety Report 7460623-2 (Version None)
Quarter: 2011Q2

REPORT INFORMATION
  Report Type: 
  Country: None (occurrence: None)
  Receive Date: 20110505
  Receipt Date: 20110502
  Transmission Date: 20111010
  Serious: Yes (Other)
  Sender: FDA-Public Use
  Company Number: US-PFIZER INC-2011012863

PATIENT
  Sex: Male

DRUGS (5)
  1. PROAIR HFA [Concomitant]
     Indication: CHRONIC OBSTRUCTIVE PULMONARY DISEASE
     Dosage: UNK,
     Dates: start: 20050101
  2. CHANTIX [Suspect]
     Indication: SMOKING CESSATION THERAPY
     Dosage: 0.5MG FOR ONE WEEK AND 1MG PER DAY
     Dates: start: 20070301, end: 20071101
  3. NEXIUM [Concomitant]
     Indication: GASTROOESOPHAGEAL REFLUX DISEASE
     Dosage: UNK,
     Dates: start: 20050101
  4. TYLOX [Concomitant]
     Indication: PAIN
     Dosage: UNK,
     Dates: start: 20050101
  5. ALAVERT [Concomitant]
     Indication: MULTIPLE ALLERGIES
     Dosage: UNK,
     Dates: start: 20050101, end: 20080101

REACTIONS (5)
  - DEPRESSION [None]
  - DIZZINESS [None]
  - ANXIETY [None]
  - CONVULSION [None]
  - LOSS OF CONSCIOUSNESS [None]
